FAERS Safety Report 17012835 (Version 1)
Quarter: 2019Q4

REPORT INFORMATION
  Report Type: Spontaneous
  Country: US (occurrence: US)
  Receive Date: 20191109
  Receipt Date: 20191109
  Transmission Date: 20200122
  Serious: Yes (Other)
  Sender: FDA-Public Use
  Company Number: US-009507513-1911USA000759

PATIENT
  Age: 64 Year
  Sex: Female

DRUGS (1)
  1. TEMODAR [Suspect]
     Active Substance: TEMOZOLOMIDE
     Indication: GLIOBLASTOMA
     Dosage: 6-WEEK TREATMENT REGIMEN
     Route: 048

REACTIONS (3)
  - Tumour pseudoprogression [Recovering/Resolving]
  - Haematotoxicity [Unknown]
  - Thrombocytopenia [Unknown]
